FAERS Safety Report 8600459-X (Version None)
Quarter: 2012Q3

REPORT INFORMATION
  Report Type: 
  Country: None (occurrence: None)
  Receive Date: 20120817
  Receipt Date: 20120814
  Transmission Date: 20120928
  Serious: Yes (Other)
  Sender: FDA-Public Use
  Company Number: GB-ELI_LILLY_AND_COMPANY-GB201207002639

PATIENT
  Age: 15 Year
  Sex: Female
  Weight: 55.8 kg

DRUGS (2)
  1. SEROQUEL XR [Concomitant]
     Dosage: 200 MG, QD
     Dates: start: 20100101
  2. FLUOXETINE HCL [Suspect]
     Indication: OBSESSIVE-COMPULSIVE DISORDER
     Dosage: 20 MG, QOD
     Route: 048
     Dates: start: 20120618, end: 20120702

REACTIONS (2)
  - INAPPROPRIATE SCHEDULE OF DRUG ADMINISTRATION [None]
  - AMNESIA [None]
